FAERS Safety Report 12966548 (Version 8)
Quarter: 2017Q1

REPORT INFORMATION
  Report Type: Report from Study
  Country: BR (occurrence: BR)
  Receive Date: 20161122
  Receipt Date: 20170203
  Transmission Date: 20170428
  Serious: Yes (Death, Hospitalization, Other)
  Sender: FDA-Public Use
  Company Number: BR-UCBSA-2016042315

PATIENT
  Age: 86 Year
  Sex: Female
  Weight: 61 kg

DRUGS (18)
  1. ROSUVASTATIN. [Concomitant]
     Active Substance: ROSUVASTATIN
     Indication: PRODUCT USED FOR UNKNOWN INDICATION
     Dosage: 10 MG, ONCE DAILY (QD)
     Route: 048
     Dates: start: 2014
  2. AMITRIPTYLINE [Concomitant]
     Active Substance: AMITRIPTYLINE
     Indication: INSOMNIA
     Dosage: 25 MG, ONCE DAILY (QD)
     Route: 048
     Dates: start: 201612
  3. GALVUS MET [Concomitant]
     Active Substance: METFORMIN HYDROCHLORIDE\VILDAGLIPTIN
     Indication: DIABETES MELLITUS
     Dosage: 2 TABLETS/DAY
     Route: 048
  4. RISPERIDONE. [Suspect]
     Active Substance: RISPERIDONE
     Indication: PRODUCT USED FOR UNKNOWN INDICATION
     Dosage: UNK
     Route: 048
     Dates: start: 20161116
  5. PROCORALAN [Concomitant]
     Active Substance: IVABRADINE
     Indication: CARDIAC DISORDER
     Dosage: 5 MG, 2X/DAY (BID)
     Route: 048
     Dates: start: 2014
  6. SULPIRIDE [Suspect]
     Active Substance: SULPIRIDE
     Indication: PRODUCT USED FOR UNKNOWN INDICATION
     Dosage: UNK
     Route: 048
     Dates: start: 20161116
  7. PROCORALAN [Concomitant]
     Active Substance: IVABRADINE
     Dosage: 2 TABLETS/DAY
     Route: 048
     Dates: start: 2015
  8. BROMAZEPAM [Suspect]
     Active Substance: BROMAZEPAM
     Indication: PRODUCT USED FOR UNKNOWN INDICATION
     Dosage: UNK
     Route: 048
     Dates: start: 20161116
  9. INSULIN [Concomitant]
     Active Substance: INSULIN NOS
     Indication: DIABETES MELLITUS
     Dosage: 7 MG, ONCE DAILY (QD)
     Route: 058
  10. TRIMETAZIDINE DIHYDROCHLORIDE [Concomitant]
     Active Substance: TRIMETAZIDINE DIHYDROCHLORIDE
     Indication: BLOOD CHOLESTEROL ABNORMAL
     Dosage: 35 MG, 2X/DAY (BID)
     Route: 048
     Dates: start: 2015
  11. SULFAPYRIDINE. [Concomitant]
     Active Substance: SULFAPYRIDINE
     Indication: HYPERTENSION
     Dosage: 5 MG, ONCE DAILY (QD)
     Route: 048
     Dates: start: 2015
  12. ASPIRIN. [Concomitant]
     Active Substance: ASPIRIN
     Indication: BLOOD DISORDER
     Dosage: 100 MG, ONCE DAILY (QD)
     Route: 048
     Dates: start: 20170109
  13. IRON [Concomitant]
     Active Substance: IRON
     Indication: ANAEMIA
     Dosage: 3 AMPOULES
     Route: 042
  14. AMOXICILLIN CLAVULANIC ACID [Concomitant]
     Active Substance: AMOXICILLIN\CLAVULANIC ACID
     Indication: LUNG INFECTION
     Dosage: UNK, 2X/DAY (BID)
     Route: 048
     Dates: start: 201611, end: 20161216
  15. CERTOLIZUMAB PEGOL [Suspect]
     Active Substance: CERTOLIZUMAB PEGOL
     Indication: RHEUMATOID ARTHRITIS
     Dosage: 200 MG, EV 15 DAYS
     Dates: start: 201608, end: 20161203
  16. RANITIDINE. [Concomitant]
     Active Substance: RANITIDINE
     Indication: INSOMNIA
     Dosage: UNK
     Route: 048
     Dates: start: 201612, end: 20170105
  17. PREDSIM [Concomitant]
     Active Substance: PREDNISOLONE
     Indication: LUNG INFECTION
     Dosage: UNK, 2X/DAY (BID)
     Route: 048
     Dates: start: 201611, end: 20161216
  18. MELOXICAM. [Concomitant]
     Active Substance: MELOXICAM
     Indication: INSOMNIA
     Dosage: UNK UNK, ONCE DAILY (QD)
     Route: 048
     Dates: start: 201612, end: 20170105

REACTIONS (19)
  - Drug interaction [Unknown]
  - Gastric infection [Recovering/Resolving]
  - Agitation [Recovered/Resolved]
  - Sepsis [Recovered/Resolved]
  - Dyspnoea [Recovered/Resolved]
  - Somnolence [Not Recovered/Not Resolved]
  - Myalgia [Not Recovered/Not Resolved]
  - Weight increased [Not Recovered/Not Resolved]
  - Weight decreased [Recovered/Resolved]
  - Death [Fatal]
  - Gait disturbance [Recovering/Resolving]
  - Hypersomnia [Not Recovered/Not Resolved]
  - Restlessness [Unknown]
  - Off label use [Unknown]
  - Aphasia [Recovered/Resolved]
  - Lung infection [Not Recovered/Not Resolved]
  - Blood pressure decreased [Unknown]
  - Pulmonary oedema [Recovering/Resolving]
  - Insomnia [Recovered/Resolved]

NARRATIVE: CASE EVENT DATE: 2016
